FAERS Safety Report 4316296-0 (Version None)
Quarter: 2004Q1

REPORT INFORMATION
  Report Type: 
  Country: None (occurrence: None)
  Receive Date: 20040311
  Receipt Date: 20040301
  Transmission Date: 20041129
  Serious: Yes (Other)
  Sender: FDA-Public Use
  Company Number: 2004-02-1495

PATIENT
  Age: 56 Year
  Sex: Male
  Weight: 96 kg

DRUGS (14)
  1. TEMODAL [Suspect]
     Indication: OLIGODENDROGLIOMA
     Dosage: SEE IMAGE
     Route: 048
     Dates: start: 20031023, end: 20031027
  2. TEMODAL [Suspect]
     Indication: OLIGODENDROGLIOMA
     Dosage: SEE IMAGE
     Route: 048
     Dates: start: 20031120, end: 20031124
  3. TEMODAL [Suspect]
     Indication: OLIGODENDROGLIOMA
     Dosage: SEE IMAGE
     Route: 048
     Dates: start: 20031218, end: 20031222
  4. TEMODAL [Suspect]
     Indication: OLIGODENDROGLIOMA
     Dosage: SEE IMAGE
     Route: 048
     Dates: start: 20040115, end: 20040119
  5. TEMODAL [Suspect]
     Indication: OLIGODENDROGLIOMA
     Dosage: SEE IMAGE
     Route: 048
     Dates: start: 20031023, end: 20040216
  6. TEMODAL [Suspect]
     Indication: OLIGODENDROGLIOMA
     Dosage: SEE IMAGE
     Route: 048
     Dates: start: 20040212, end: 20040216
  7. ENALAPRIL MALEATE TABLETS [Concomitant]
  8. METOPROLOL TARTRATE [Concomitant]
  9. APONAL COATED TABLETS [Concomitant]
  10. PANTOZOL (PANTOPRAZOLE) TABLETS [Concomitant]
  11. FORTECORTIN TABLETS [Concomitant]
  12. LASIX RETARD CAPSULES [Concomitant]
  13. KALINOR EFFERVESCENT TABLETS [Concomitant]
  14. CLIVARINE (REVIPARIN SODIUM) INJECTABLE [Concomitant]

REACTIONS (2)
  - SIMPLE PARTIAL SEIZURES [None]
  - TEMPORAL LOBE EPILEPSY [None]
